FAERS Safety Report 18722541 (Version 1)
Quarter: 2021Q1

REPORT INFORMATION
  Report Type: Spontaneous
  Country: US (occurrence: US)
  Receive Date: 20210111
  Receipt Date: 20210111
  Transmission Date: 20210419
  Serious: No
  Sender: FDA-Public Use
  Company Number: US-AMGEN INC.-USASP2021001898

PATIENT
  Age: 75 Year
  Sex: Female

DRUGS (16)
  1. SACUBITRIL;VALSARTAN [Concomitant]
     Active Substance: SACUBITRIL\VALSARTAN
  2. PRAVASTATIN. [Concomitant]
     Active Substance: PRAVASTATIN
  3. DENOSUMAB [Concomitant]
     Active Substance: DENOSUMAB
  4. GABAPENTIN. [Concomitant]
     Active Substance: GABAPENTIN
  5. PROLIA [Suspect]
     Active Substance: DENOSUMAB
     Indication: OSTEOPOROSIS
     Dosage: UNK
     Route: 065
  6. ERYTHROPOIETIN [Concomitant]
     Active Substance: ERYTHROPOIETIN
  7. SEVELAMER [Concomitant]
     Active Substance: SEVELAMER
  8. ASPIRIN [ACETYLSALICYLIC ACID] [Concomitant]
     Active Substance: ASPIRIN
  9. LINAGLIPTIN [Concomitant]
     Active Substance: LINAGLIPTIN
  10. PENTOXIFYLLINE. [Concomitant]
     Active Substance: PENTOXIFYLLINE
  11. METOPROLOL. [Concomitant]
     Active Substance: METOPROLOL
  12. CLONIDINE. [Concomitant]
     Active Substance: CLONIDINE
  13. ERENUMAB [Suspect]
     Active Substance: ERENUMAB
     Indication: MIGRAINE PROPHYLAXIS
     Dosage: UNK
     Route: 065
  14. PANTOPRAZOLE [Concomitant]
     Active Substance: PANTOPRAZOLE
  15. CALCITRIOL. [Concomitant]
     Active Substance: CALCITRIOL
  16. ALIROCUMAB [Concomitant]
     Active Substance: ALIROCUMAB

REACTIONS (6)
  - Condition aggravated [Unknown]
  - Neck pain [Unknown]
  - Radiculopathy [Unknown]
  - Spinal flattening [Unknown]
  - Therapeutic response unexpected [Unknown]
  - Hyporeflexia [Unknown]
